FAERS Safety Report 18350021 (Version 2)
Quarter: 2020Q4

REPORT INFORMATION
  Report Type: Spontaneous
  Country: US (occurrence: US)
  Receive Date: 20201006
  Receipt Date: 20201022
  Transmission Date: 20210114
  Serious: Yes (Other)
  Sender: FDA-Public Use
  Company Number: US-PFIZER INC-2020384960

PATIENT
  Age: 64 Year
  Sex: Female
  Weight: 113.4 kg

DRUGS (15)
  1. DIGESTIVE ENZYME PLUS [Concomitant]
     Dosage: 1 DF, 3X/DAY  (TAKE 1 CAPSULE 3 TIMES DAILY)
  2. GABAPENTIN. [Concomitant]
     Active Substance: GABAPENTIN
     Dosage: 1200 MG, 3X/DAY
     Route: 048
  3. IMMUPLEX [Concomitant]
     Dosage: UNK
  4. MILK THISTLE [Concomitant]
     Active Substance: DIETARY SUPPLEMENT\HERBALS\MILK THISTLE
     Dosage: UNK
  5. OXYCODONE HYDROCHLORIDE. [Concomitant]
     Active Substance: OXYCODONE HYDROCHLORIDE
     Dosage: UNK, AS NEEDED (10 MG/PO Q(EVERY)6HRS PRN(AS NEEDED)
     Route: 048
  6. BUSPIRONE HCL [Concomitant]
     Active Substance: BUSPIRONE HYDROCHLORIDE
     Dosage: 15 MG, 3X/DAY
     Route: 048
  7. VITAMIN D3 [Concomitant]
     Active Substance: CHOLECALCIFEROL
     Dosage: UNK
  8. XELJANZ XR [Suspect]
     Active Substance: TOFACITINIB CITRATE
     Indication: RHEUMATOID ARTHRITIS
     Dosage: 11 MG, DAILY
     Route: 048
     Dates: start: 201901
  9. DICLOFENAC SODIUM. [Concomitant]
     Active Substance: DICLOFENAC SODIUM
     Indication: LIMB DISCOMFORT
     Dosage: 4 G, 4X/DAY (4 GM OF GEL TO AFFECTED AREA 4 TIMES DAILY. DO NOT APPLY MORE THAN 16 GM DAILY TO ANY O
     Dates: start: 20181205
  10. LEVSIN/SL [Concomitant]
     Dosage: 0.125 MG, 2X/DAY
     Route: 060
     Dates: start: 20200709
  11. XELJANZ XR [Suspect]
     Active Substance: TOFACITINIB CITRATE
     Indication: RHEUMATOID ARTHRITIS
     Dosage: 11 MG, 1X/DAY (TAKE 1 TABLET BY MOUTH EVERY DAY AS DIRECTED BY PHYSICIAN)
     Route: 048
     Dates: start: 20181105
  12. OMEPRAZOLE. [Concomitant]
     Active Substance: OMEPRAZOLE
     Dosage: 40 MG, DAILY (TAKE 1 CAPSULE DAILY 30 MIN TO 1 HR BEFORE BREAKFAST)
     Route: 048
     Dates: start: 20200709
  13. VITAMIN B12 [Concomitant]
     Active Substance: CYANOCOBALAMIN
     Dosage: 2000 UG, 2X/DAY(TAKE 2000 MCG TWICE DAILY)
  14. VENTOLIN HFA [Concomitant]
     Active Substance: ALBUTEROL SULFATE
     Indication: WHEEZING
     Dosage: UNK, AS NEEDED (INHALE 1-2 PUFFS EVERY 4-6 HOURS AS NEEDED FOR WHEEZING)
     Dates: start: 20191223
  15. AMLODIPINE BESYLATE. [Concomitant]
     Active Substance: AMLODIPINE BESYLATE
     Dosage: UNK
     Dates: start: 20150730

REACTIONS (4)
  - Pneumonia aspiration [Recovered/Resolved]
  - Osteoarthritis [Recovered/Resolved]
  - Expired product administered [Unknown]
  - Pneumonia [Recovering/Resolving]

NARRATIVE: CASE EVENT DATE: 201912
